FAERS Safety Report 7971536-1 (Version None)
Quarter: 2011Q4

REPORT INFORMATION
  Report Type: 
  Country: None (occurrence: None)
  Receive Date: 20111212
  Receipt Date: 20111208
  Transmission Date: 20120403
  Serious: Yes (Other)
  Sender: FDA-Public Use
  Company Number: GB-TEVA-312778ISR

PATIENT
  Age: 43 Year
  Sex: Female

DRUGS (3)
  1. ACYCLOVIR [Concomitant]
  2. CABERGOLINE [Suspect]
     Indication: PROLACTINOMA
     Route: 048
     Dates: start: 19980101
  3. FUSIDIC ACID [Concomitant]

REACTIONS (2)
  - NEUTROPENIA [None]
  - RENAL FAILURE CHRONIC [None]
